FAERS Safety Report 13787086 (Version 1)
Quarter: 2017Q3

REPORT INFORMATION
  Report Type: Spontaneous
  Country: US (occurrence: US)
  Receive Date: 20170725
  Receipt Date: 20170725
  Transmission Date: 20171127
  Serious: Yes (Other)
  Sender: FDA-Public Use
  Company Number: None

PATIENT
  Age: 67 Year
  Sex: Female
  Weight: 72.12 kg

DRUGS (15)
  1. LORAZEPAM. [Suspect]
     Active Substance: LORAZEPAM
  2. REPATHA [Suspect]
     Active Substance: EVOLOCUMAB
     Indication: HYPERTENSION
     Dates: start: 201707, end: 201707
  3. SYNTHROID [Concomitant]
     Active Substance: LEVOTHYROXINE SODIUM
  4. LORAZEPAM. [Suspect]
     Active Substance: LORAZEPAM
  5. IMPRAMINE [Concomitant]
     Active Substance: IMIPRAMINE
  6. REPATHA [Suspect]
     Active Substance: EVOLOCUMAB
     Indication: HYPOTHYROIDISM
     Dates: start: 201707, end: 201707
  7. REPATHA [Suspect]
     Active Substance: EVOLOCUMAB
     Indication: RESTLESS LEGS SYNDROME
     Dates: start: 201707, end: 201707
  8. VALSARTAN HC [Concomitant]
  9. CLOPIDOGREL [Concomitant]
     Active Substance: CLOPIDOGREL BISULFATE
  10. HYDROCHLOROTHIAZIDE. [Concomitant]
     Active Substance: HYDROCHLOROTHIAZIDE
  11. REPATHA [Suspect]
     Active Substance: EVOLOCUMAB
     Indication: TRANSIENT ISCHAEMIC ATTACK
     Dates: start: 201707, end: 201707
  12. TEMAZEPAM. [Concomitant]
     Active Substance: TEMAZEPAM
  13. BENTYL [Concomitant]
     Active Substance: DICYCLOMINE HYDROCHLORIDE
  14. REPATHA [Suspect]
     Active Substance: EVOLOCUMAB
     Indication: DEPRESSION
     Dates: start: 201707, end: 201707
  15. REPATHA [Suspect]
     Active Substance: EVOLOCUMAB
     Indication: ANXIETY
     Dates: start: 201707, end: 201707

REACTIONS (20)
  - Psychomotor hyperactivity [None]
  - Full blood count abnormal [None]
  - Pain in extremity [None]
  - Blood parathyroid hormone decreased [None]
  - Muscular weakness [None]
  - Pain [None]
  - Muscle injury [None]
  - General physical health deterioration [None]
  - Headache [None]
  - Thinking abnormal [None]
  - Tremor [None]
  - Dyspnoea [None]
  - Dehydration [None]
  - Anxiety [None]
  - Feeding disorder [None]
  - Visual impairment [None]
  - Formication [None]
  - Dizziness [None]
  - Nausea [None]
  - Weight decreased [None]

NARRATIVE: CASE EVENT DATE: 20170620
